FAERS Safety Report 7563557-8 (Version None)
Quarter: 2011Q2

REPORT INFORMATION
  Report Type: 
  Country: None (occurrence: None)
  Receive Date: 20110622
  Receipt Date: 20110608
  Transmission Date: 20111010
  Serious: Yes (Other)
  Sender: FDA-Public Use
  Company Number: US-JNJFOC-20110504070

PATIENT
  Sex: Female
  Weight: 72.58 kg

DRUGS (8)
  1. REMICADE [Suspect]
     Indication: CROHN'S DISEASE
     Route: 042
     Dates: start: 20080814
  2. ZANTAC [Concomitant]
     Indication: GASTROOESOPHAGEAL REFLUX DISEASE
     Route: 065
  3. ADVAIR DISKUS 100/50 [Concomitant]
     Indication: ASTHMA
     Route: 065
  4. MELOXICAM [Concomitant]
     Indication: OSTEOARTHRITIS
     Route: 065
  5. PAROXETINE HCL [Concomitant]
     Indication: DEPRESSION
     Route: 065
  6. LASIX [Concomitant]
     Indication: OEDEMA
     Route: 065
  7. ESTRADIOL [Concomitant]
     Indication: HORMONE REPLACEMENT THERAPY
     Route: 065
  8. ADVAIR DISKUS 100/50 [Concomitant]
     Route: 065

REACTIONS (1)
  - BREAST CANCER [None]
